FAERS Safety Report 23706220 (Version 1)
Quarter: 2024Q2

REPORT INFORMATION
  Report Type: Spontaneous
  Country: US (occurrence: None)
  Receive Date: 20240403
  Receipt Date: 20240403
  Transmission Date: 20240716
  Serious: No
  Sender: FDA-Public Use
  Company Number: None

PATIENT
  Sex: Male

DRUGS (11)
  1. LENALIDOMIDE [Suspect]
     Active Substance: LENALIDOMIDE
     Indication: Plasma cell myeloma
     Dosage: FREQUENCY : AS DIRECTED;?
     Route: 048
     Dates: start: 20231020
  2. ACYCLOVIR [Suspect]
     Active Substance: ACYCLOVIR
  3. AMPICILLIN [Concomitant]
  4. ASPIRIN [Concomitant]
     Active Substance: ASPIRIN
  5. DIAZEPAM [Concomitant]
  6. NARCAN [Concomitant]
  7. OXYCODONE [Concomitant]
  8. OXYCONTIN [Concomitant]
  9. STOOL SOFTENER (DOCUSATE) [Concomitant]
     Active Substance: DOCUSATE
  10. TRAZODONE [Concomitant]
  11. VITAMIN B12 [Concomitant]
     Active Substance: CYANOCOBALAMIN

REACTIONS (2)
  - Hospitalisation [None]
  - Intentional dose omission [None]
